FAERS Safety Report 5531956-1 (Version None)
Quarter: 2007Q4

REPORT INFORMATION
  Report Type: 
  Country: None (occurrence: None)
  Receive Date: 20071203
  Receipt Date: 20071123
  Transmission Date: 20080405
  Serious: Yes (Hospitalization)
  Sender: FDA-Public Use
  Company Number: FR-ELI_LILLY_AND_COMPANY-FR200711005292

PATIENT
  Sex: Male

DRUGS (5)
  1. GEMZAR [Suspect]
     Indication: LUNG NEOPLASM MALIGNANT
     Dosage: UNK, OTHER
     Route: 042
     Dates: start: 20070301, end: 20070619
  2. CARBOPLATIN [Concomitant]
     Indication: LUNG NEOPLASM MALIGNANT
     Dosage: UNK, OTHER
     Route: 042
     Dates: start: 20070301
  3. DEPAKINE CHRONO [Concomitant]
     Dosage: 500 MG, 3/D
     Route: 065
  4. TANAKAN [Concomitant]
     Dosage: 1 D/F, 3/D
     Route: 065
  5. LEVOTHYROX [Concomitant]
     Dosage: 125 UG, EACH MORNING
     Route: 065

REACTIONS (6)
  - ANAEMIA [None]
  - DYSPHAGIA [None]
  - DYSPNOEA [None]
  - FACE OEDEMA [None]
  - LOCALISED OEDEMA [None]
  - THROMBOCYTOPENIA [None]
